FAERS Safety Report 5625679-8 (Version None)
Quarter: 2008Q1

REPORT INFORMATION
  Report Type: 
  Country: None (occurrence: None)
  Receive Date: 20080207
  Receipt Date: 20080207
  Transmission Date: 20080703
  Serious: Yes (Other)
  Sender: FDA-Public Use
  Company Number: None

PATIENT
  Age: 53 Year
  Sex: Female
  Weight: 56.6996 kg

DRUGS (2)
  1. XYZAL [Suspect]
     Indication: HYPERSENSITIVITY
     Dosage: ONE TABLET ONCE BEFORE BEDTIM PO
     Route: 048
     Dates: start: 20080205, end: 20080205
  2. NASACORT [Suspect]
     Dosage: TWO SPRAYS EACH NOSTRILS ONCE A DAY NASAL
     Route: 045

REACTIONS (12)
  - ABDOMINAL DISTENSION [None]
  - COUGH [None]
  - DYSPHONIA [None]
  - EYE SWELLING [None]
  - GENERALISED OEDEMA [None]
  - ILL-DEFINED DISORDER [None]
  - LACRIMATION INCREASED [None]
  - MUSCLE TIGHTNESS [None]
  - RESPIRATORY DISORDER [None]
  - RHINORRHOEA [None]
  - SNEEZING [None]
  - SWELLING FACE [None]
